FAERS Safety Report 8921069 (Version 1)
Quarter: 2012Q4

REPORT INFORMATION
  Report Type: 
  Country: US (occurrence: US)
  Receive Date: 20121123
  Receipt Date: 20121123
  Transmission Date: 20130627
  Serious: Yes (Other)
  Sender: FDA-Public Use
  Company Number: US-009507513-1211USA008852

PATIENT
  Age: 46 Year
  Sex: Female

DRUGS (4)
  1. FELBAMATE [Suspect]
     Indication: GRAND MAL CONVULSION
     Dosage: 1200 mg (600 mg 2 tablets) 3 times daily
     Route: 048
     Dates: start: 201211
  2. FELBATOL [Concomitant]
     Indication: CONVULSION
     Dosage: 600 mg, tid, duration: 20 years (as reported)
     Route: 048
     Dates: start: 1992, end: 201210
  3. KEPPRA XR [Concomitant]
     Indication: CONVULSION
     Dosage: 500 mg, tid
     Route: 048
     Dates: start: 2000
  4. ZONEGRAN [Concomitant]
     Indication: CONVULSION
     Dosage: 300 mg,at bedtime (HS)
     Route: 048
     Dates: start: 2010

REACTIONS (1)
  - Convulsion [Recovered/Resolved]
